FAERS Safety Report 21685474 (Version 1)
Quarter: 2022Q4

REPORT INFORMATION
  Report Type: Spontaneous
  Country: AU (occurrence: AU)
  Receive Date: 20221206
  Receipt Date: 20221206
  Transmission Date: 20230113
  Serious: Yes (Death, Other)
  Sender: FDA-Public Use
  Company Number: AU-BAXTER-2022BAX025799

PATIENT
  Age: 82 Year

DRUGS (15)
  1. DOXORUBICIN [Suspect]
     Active Substance: DOXORUBICIN
     Indication: Chronic lymphocytic leukaemia
     Dosage: SIXTH LINE TREATMENT- 1 CYCLE OF R-MINICHOP
     Route: 065
  2. CYCLOPHOSPHAMIDE [Suspect]
     Active Substance: CYCLOPHOSPHAMIDE
     Indication: Chronic lymphocytic leukaemia
     Dosage: SECOND LINE TREATMENT- FCR REGIMEN X 5 CYCLES
     Route: 065
     Dates: start: 201112, end: 201204
  3. CYCLOPHOSPHAMIDE [Suspect]
     Active Substance: CYCLOPHOSPHAMIDE
     Dosage: SIXTH LINE TREATMENT- 1 CYCLE OF R-MINICHOP
     Route: 065
  4. FLUDARABINE [Suspect]
     Active Substance: FLUDARABINE PHOSPHATE
     Indication: Chronic lymphocytic leukaemia
     Dosage: SECOND LINE TREATMENT- FCR REGIMEN X 5 CYCLES
     Route: 065
     Dates: start: 201112, end: 201204
  5. RITUXIMAB [Suspect]
     Active Substance: RITUXIMAB
     Indication: Chronic lymphocytic leukaemia
     Dosage: SECOND LINE TREATMENT- FCR REGIMEN X 5 CYCLES
     Route: 065
     Dates: start: 201112, end: 201204
  6. RITUXIMAB [Suspect]
     Active Substance: RITUXIMAB
     Dosage: FOURTH LINE TREATMENT- RITUXIMAB + CONTINUOUS VENETOCLAX (CLINICAL TRIAL)
     Route: 065
     Dates: start: 201404, end: 201608
  7. RITUXIMAB [Suspect]
     Active Substance: RITUXIMAB
     Dosage: SIXTH LINE TREATMENT- 1 CYCLE OF R-MINICHOP
     Route: 065
  8. CHLORAMBUCIL [Suspect]
     Active Substance: CHLORAMBUCIL
     Indication: Chronic lymphocytic leukaemia
     Dosage: THIRD LINE TREATMENT (MID/LATE 2013)
     Route: 065
     Dates: start: 2013
  9. DEXAMETHASONE [Suspect]
     Active Substance: DEXAMETHASONE
     Indication: Chronic lymphocytic leukaemia
     Dosage: THIRD LINE TREATMENT (MID/LATE 2013)
     Route: 065
     Dates: start: 2013
  10. VENETOCLAX [Suspect]
     Active Substance: VENETOCLAX
     Indication: Chronic lymphocytic leukaemia
     Dosage: FOURTH LINE TREATMENT- RITUXIMAB + CONTINUOUS VENETOCLAX (CLINICAL TRIAL)
     Route: 065
     Dates: start: 201404, end: 201608
  11. VENETOCLAX [Suspect]
     Active Substance: VENETOCLAX
     Dosage: SIXTH LINE TREATMENT
     Route: 065
     Dates: start: 201812
  12. ZANUBRUTINIB [Suspect]
     Active Substance: ZANUBRUTINIB
     Indication: Chronic lymphocytic leukaemia
     Dosage: FIFTH LINE TREATMENT (CLINICAL TRIAL)
     Route: 065
     Dates: start: 201610, end: 201811
  13. IBRUTINIB [Suspect]
     Active Substance: IBRUTINIB
     Indication: Chronic lymphocytic leukaemia
     Dosage: SIXTH LINE TREATMENT, FOLLOWED BY VENETOCLAX
     Route: 065
     Dates: start: 201812
  14. VINCRISTINE [Suspect]
     Active Substance: VINCRISTINE
     Indication: Chronic lymphocytic leukaemia
     Dosage: SIXTH LINE TREATMENT- 1 CYCLE OF R-MINICHOP
     Route: 065
  15. PREDNISOLONE [Suspect]
     Active Substance: PREDNISOLONE
     Indication: Chronic lymphocytic leukaemia
     Dosage: SIXTH LINE TREATMENT- 1 CYCLE OF R-MINICHOP
     Route: 065

REACTIONS (4)
  - Death [Fatal]
  - Richter^s syndrome [Unknown]
  - Tyrosine kinase mutation [Unknown]
  - TP53 gene mutation [Unknown]

NARRATIVE: CASE EVENT DATE: 20191001
